FAERS Safety Report 5753013-1 (Version None)
Quarter: 2008Q2

REPORT INFORMATION
  Report Type: 
  Country: None (occurrence: None)
  Receive Date: 20080529
  Receipt Date: 20080520
  Transmission Date: 20081010
  Serious: Yes (Other)
  Sender: FDA-Public Use
  Company Number: US-GENENTECH-261367

PATIENT
  Sex: Male

DRUGS (3)
  1. RITUXAN [Suspect]
     Indication: WALDENSTROM'S MACROGLOBULINAEMIA
     Route: 042
  2. STEROID (NAME UNKNOWN) [Concomitant]
     Indication: DRUG USE FOR UNKNOWN INDICATION
  3. BENADRYL [Concomitant]
     Indication: DRUG USE FOR UNKNOWN INDICATION

REACTIONS (1)
  - PORPHYRIA [None]
